FAERS Safety Report 6023018-4 (Version None)
Quarter: 2008Q4

REPORT INFORMATION
  Report Type: 
  Country: None (occurrence: None)
  Receive Date: 20081222
  Receipt Date: 20080915
  Transmission Date: 20090506
  Serious: No
  Sender: FDA-Public Use
  Company Number: ALL1-2008-02622

PATIENT
  Sex: Female

DRUGS (2)
  1. VYVANSE [Suspect]
  2. SSRI [Concomitant]

REACTIONS (1)
  - CONTUSION [None]
